FAERS Safety Report 19598035 (Version 1)
Quarter: 2021Q3

REPORT INFORMATION
  Report Type: Spontaneous
  Country: GB (occurrence: GB)
  Receive Date: 20210722
  Receipt Date: 20210722
  Transmission Date: 20211014
  Serious: Yes (Other)
  Sender: FDA-Public Use
  Company Number: GB-DEXPHARM-20211145

PATIENT
  Age: 65 Year
  Sex: Female
  Weight: 65 kg

DRUGS (11)
  1. SALBUTAMOL [Concomitant]
     Active Substance: ALBUTEROL
     Dosage: PUFFS AS REQUIRED 4 SEPARATED DOSES
     Dates: start: 20210128
  2. BETAMETHASONE VALERATE. [Concomitant]
     Active Substance: BETAMETHASONE VALERATE
     Dosage: APPLY 2 SEPARATED DOSES
     Dates: start: 20210611
  3. BALNEUM [Concomitant]
     Dosage: APPLY AS SOAP AS WELL AS MOISTURISER ? DOWNB AC.
     Dates: start: 20210601
  4. FLUCLOXACILLIN [Concomitant]
     Active Substance: FLUCLOXACILLIN
     Dosage: 4 SEPARATED DOSES
     Dates: start: 20210603, end: 20210610
  5. MOMETASONE [Concomitant]
     Active Substance: MOMETASONE
     Dosage: APPLY DAILY
     Dates: start: 20210611
  6. EMOLLIN [Concomitant]
     Dosage: USE AS DIRECTED
     Dates: start: 20210611
  7. OMEPRAZOLE. [Suspect]
     Active Substance: OMEPRAZOLE
     Dates: start: 20210528
  8. HYDROXYZINE [Concomitant]
     Active Substance: HYDROXYZINE HYDROCHLORIDE
     Dosage: AT NIGHT
     Dates: start: 20210611
  9. PARACETAMOL [Concomitant]
     Active Substance: ACETAMINOPHEN
     Dosage: TAKE 2 FOUR TIMES/DAY 4 SEPARATED DOSES
     Dates: start: 20210611
  10. CLENIL MODULITE [Concomitant]
     Active Substance: BECLOMETHASONE DIPROPIONATE
     Dosage: PUFFS 2 SEPARATED DOSES
     Route: 055
     Dates: start: 20210128
  11. DERMACOOL [Concomitant]
     Indication: PRURITUS
     Dosage: APPLY ? D.
     Dates: start: 20210601

REACTIONS (2)
  - Dermatitis allergic [Recovered/Resolved]
  - Pruritus [Unknown]
